FAERS Safety Report 16062550 (Version 2)
Quarter: 2019Q2

REPORT INFORMATION
  Report Type: Spontaneous
  Country: FR (occurrence: FR)
  Receive Date: 20190312
  Receipt Date: 20190504
  Transmission Date: 20190711
  Serious: Yes (Other)
  Sender: FDA-Public Use
  Company Number: PHHY2019FR051769

PATIENT
  Age: 32 Year
  Sex: Male
  Weight: 68 kg

DRUGS (7)
  1. CAPRELSA [Interacting]
     Active Substance: VANDETANIB
     Dosage: 300 MG, Q12H (300 MG, BID)
     Route: 048
     Dates: start: 20190216
  2. FUMAFER [Concomitant]
     Active Substance: FERROUS FUMARATE
     Indication: IRON DEFICIENCY
     Dosage: 66 MG, Q12H (66 MG, BID)
     Route: 048
     Dates: start: 20190216
  3. RIFAMPICIN [Suspect]
     Active Substance: RIFAMPIN
     Indication: PRODUCT USED FOR UNKNOWN INDICATION
     Dosage: UNK
     Route: 065
  4. LEVOTHYROX [Concomitant]
     Active Substance: LEVOTHYROXINE
     Indication: HYPOTHYROIDISM
     Dosage: 100 UG, QD
     Route: 048
     Dates: start: 20190216
  5. CAPRELSA [Interacting]
     Active Substance: VANDETANIB
     Indication: MEDULLARY THYROID CANCER
     Dosage: UNK
     Route: 065
  6. CAPRELSA [Interacting]
     Active Substance: VANDETANIB
     Dosage: 6 DF, UNK
     Route: 065
  7. RIFATER [Concomitant]
     Active Substance: ISONIAZID\PYRAZINAMIDE\RIFAMPIN
     Indication: TUBERCULOSIS
     Dosage: 6 DF, QD
     Route: 048
     Dates: start: 20190216

REACTIONS (3)
  - Tuberculosis [Unknown]
  - Off label use [Unknown]
  - Drug interaction [Unknown]
